FAERS Safety Report 4351167-5 (Version None)
Quarter: 2004Q2

REPORT INFORMATION
  Report Type: 
  Country: None (occurrence: None)
  Receive Date: 20040428
  Receipt Date: 20031230
  Transmission Date: 20050107
  Serious: Yes (Other)
  Sender: FDA-Public Use
  Company Number: US-JNJFOC-20040100108

PATIENT
  Age: 33 Year
  Sex: Female

DRUGS (3)
  1. ULTRAM [Suspect]
     Indication: HEADACHE
     Dosage: 10 DOSE(S), IN 1 DAY, ORAL
     Route: 048
     Dates: start: 19980101
  2. SEIZURE MEDICATION (ANTIEPILEPTICS) [Concomitant]
  3. TOPROL (METOPROLOL SUCCINATE) [Concomitant]

REACTIONS (1)
  - CONVULSION [None]
